FAERS Safety Report 7059830-2 (Version None)
Quarter: 2010Q4

REPORT INFORMATION
  Report Type: 
  Country: None (occurrence: None)
  Receive Date: 20101025
  Receipt Date: 20101014
  Transmission Date: 20110411
  Serious: Yes (Other)
  Sender: FDA-Public Use
  Company Number: JP-PFIZER INC-2010113777

PATIENT
  Age: 54 Year
  Sex: Male

DRUGS (12)
  1. SUTENT [Suspect]
     Indication: RENAL CELL CARCINOMA
     Dosage: 50 MG, 1X/DAY
     Route: 048
     Dates: start: 20100305, end: 20100801
  2. SUTENT [Suspect]
     Dosage: 25 MG, 2X/DAY
     Route: 048
     Dates: start: 20100831, end: 20100909
  3. NAUZELIN [Concomitant]
  4. MAGNESIUM OXIDE [Concomitant]
  5. DEPAS [Concomitant]
  6. LASIX [Concomitant]
  7. GABAPENTIN [Concomitant]
  8. ACETAMINOPHEN [Concomitant]
  9. LOXONIN [Concomitant]
  10. CYTOTEC [Concomitant]
  11. DUROTEP [Concomitant]
  12. MORPHINE HYDROCHLORIDE [Concomitant]

REACTIONS (2)
  - FACE OEDEMA [None]
  - MALAISE [None]
